FAERS Safety Report 8663069 (Version 3)
Quarter: 2013Q4

REPORT INFORMATION
  Report Type: Spontaneous
  Country: US (occurrence: US)
  Receive Date: 20120713
  Receipt Date: 20131031
  Transmission Date: 20140711
  Serious: Yes (Life-Threatening, Hospitalization, Other)
  Sender: FDA-Public Use
  Company Number: US-009507513-2012SP032791

PATIENT
  Age: 70 Year
  Sex: Male

DRUGS (13)
  1. DULERA [Suspect]
     Indication: ASTHMA
     Dosage: INHALATION, 200/5, BID
     Route: 055
     Dates: start: 20120418, end: 20120503
  2. NEXIUM [Concomitant]
     Dosage: 40 MG, BID
     Dates: start: 2011
  3. REGLAN [Concomitant]
     Dosage: 10 MG, TID
     Route: 048
     Dates: start: 201203
  4. SINGULAIR [Concomitant]
     Dosage: 10 MG, QD
     Dates: start: 2010
  5. SIMVASTATIN TABLETS, USP [Concomitant]
     Dosage: 10 MG, QD
     Route: 048
     Dates: start: 201110
  6. KEPPRA [Concomitant]
     Indication: CONVULSION
  7. ASPIRIN [Concomitant]
     Dosage: 81 MG, QD
     Dates: start: 2009
  8. NORCO [Concomitant]
     Dosage: UNK, PRN
  9. LASIX (FUROSEMIDE SODIUM) [Concomitant]
     Dosage: 20 MG, QD
     Dates: start: 201205
  10. VITAMINS (UNSPECIFIED) [Concomitant]
     Dosage: 1 TABLET DAILY
     Dates: start: 2010
  11. LOVAZA [Concomitant]
     Dosage: 100 MG, BID
     Dates: start: 2008
  12. MIRAPEX [Concomitant]
     Dosage: 2 MG, QH
     Dates: start: 2010
  13. VERAPAMIL [Concomitant]
     Dosage: 180 MG, UNK
     Dates: start: 201109

REACTIONS (3)
  - Complex partial seizures [Not Recovered/Not Resolved]
  - Pulmonary embolism [Unknown]
  - Nephrolithiasis [Unknown]
